FAERS Safety Report 9970187 (Version 1)
Quarter: 2014Q1

REPORT INFORMATION
  Report Type: Not Available
  Country: FR (occurrence: FR)
  Receive Date: 20140306
  Receipt Date: 20140306
  Transmission Date: 20141002
  Serious: Yes (Hospitalization)
  Sender: FDA-Public Use
  Company Number: FR-ASTELLAS-2014EU001812

PATIENT
  Age: 95 Year
  Sex: Female

DRUGS (11)
  1. VESICARE [Suspect]
     Indication: URINARY INCONTINENCE
     Dosage: 1 DF, BID
     Route: 048
     Dates: start: 20130819, end: 20140106
  2. KARDEGIC [Suspect]
     Indication: PROPHYLAXIS
     Dosage: 1 DF, UID/QD
     Route: 048
     Dates: start: 201210
  3. SECTRAL [Concomitant]
     Dosage: UNK
     Route: 065
  4. IKOREL [Concomitant]
     Dosage: UNK
     Route: 065
  5. ELISOR [Concomitant]
     Dosage: UNK
     Route: 065
  6. TRIATEC                            /00885601/ [Concomitant]
     Dosage: UNK
     Route: 065
  7. LASILIX                            /00032601/ [Concomitant]
     Dosage: UNK
     Route: 065
  8. DIFFU-K [Concomitant]
     Dosage: UNK
     Route: 065
  9. LANTUS [Concomitant]
     Dosage: UNK
     Route: 065
  10. ACTRAPID [Concomitant]
     Dosage: UNK
     Route: 065
  11. UVEDOSE [Concomitant]
     Dosage: UNK
     Route: 065

REACTIONS (2)
  - Haematoma [Recovered/Resolved]
  - Anaemia [Recovered/Resolved]
